FAERS Safety Report 9454369 (Version 2)
Quarter: 2013Q3

REPORT INFORMATION
  Report Type: Spontaneous
  Country: US (occurrence: US)
  Receive Date: 20130812
  Receipt Date: 20130828
  Transmission Date: 20140515
  Serious: Yes (Other)
  Sender: FDA-Public Use
  Company Number: US-BRISTOL-MYERS SQUIBB COMPANY-19160241

PATIENT
  Age: 65 Year
  Sex: Male
  Weight: 148.29 kg

DRUGS (2)
  1. BYDUREON [Suspect]
     Indication: TYPE 2 DIABETES MELLITUS
     Route: 058
     Dates: start: 20120320
  2. WARFARIN [Concomitant]
     Indication: ATRIAL FIBRILLATION

REACTIONS (2)
  - Injection site cellulitis [Recovered/Resolved]
  - Skin ulcer [Unknown]
